FAERS Safety Report 7603155-0 (Version None)
Quarter: 2011Q3

REPORT INFORMATION
  Report Type: 
  Country: None (occurrence: None)
  Receive Date: 20110701
  Receipt Date: 20110616
  Transmission Date: 20111222
  Serious: Yes (Disabling)
  Sender: FDA-Public Use
  Company Number: AUR-APL-2011-03247

PATIENT
  Age: 63 Year
  Sex: Male
  Weight: 80 kg

DRUGS (5)
  1. LEVOTHYROXINE SODIUM [Concomitant]
  2. LEVOTHYROXINE SODIUM [Concomitant]
  3. LAMOTRIGINE [Suspect]
     Indication: DEPRESSION
     Dosage: ORAL
     Route: 048
     Dates: start: 20110125, end: 20110405
  4. ALLOPURINOL [Concomitant]
  5. LITHIUM CARBONATE [Concomitant]

REACTIONS (4)
  - IRRITABILITY [None]
  - AGGRESSION [None]
  - ABNORMAL BEHAVIOUR [None]
  - DISABILITY [None]
